FAERS Safety Report 8429284-X (Version None)
Quarter: 2012Q2

REPORT INFORMATION
  Report Type: 
  Country: None (occurrence: None)
  Receive Date: 20120612
  Receipt Date: 20120608
  Transmission Date: 20120825
  Serious: Yes (Death, Other)
  Sender: FDA-Public Use
  Company Number: PHHY2011IN105919

PATIENT
  Sex: Female

DRUGS (2)
  1. IMATINIB MESYLATE [Suspect]
     Indication: GASTROINTESTINAL STROMAL TUMOUR
     Dosage: 400 MG, UNK
     Route: 065
  2. IMATINIB MESYLATE [Suspect]
     Dosage: 600 MG, UNK
     Route: 065

REACTIONS (4)
  - NEOPLASM PROGRESSION [None]
  - DEATH [None]
  - OEDEMA PERIPHERAL [None]
  - NEOPLASM MALIGNANT [None]
